FAERS Safety Report 9588088 (Version 1)
Quarter: 2013Q4

REPORT INFORMATION
  Report Type: Spontaneous
  Country: US (occurrence: US)
  Receive Date: 20131003
  Receipt Date: 20131003
  Transmission Date: 20140711
  Serious: No
  Sender: FDA-Public Use
  Company Number: US-AMGEN-USASP2012067988

PATIENT
  Age: 51 Year
  Sex: Female
  Weight: 90.7 kg

DRUGS (7)
  1. ENBREL [Suspect]
     Indication: PSORIATIC ARTHROPATHY
     Dosage: 25 MG, 2 TIMES/WK
     Route: 058
  2. NABUMETONE [Concomitant]
     Dosage: 750 MG, UNK
     Route: 048
  3. TYLENOL 8 HOUR [Concomitant]
     Dosage: 650 MG, UNK
     Route: 048
  4. VITAMIN D                          /00107901/ [Concomitant]
     Dosage: 50000 UNIT, UNK
     Route: 048
  5. VITAMIN B12 LOGES [Concomitant]
     Dosage: 500 MCG, UNK
     Route: 048
  6. FISH OIL [Concomitant]
     Dosage: UNK
     Route: 048
  7. MULTICAPS [Concomitant]
     Dosage: UNK
     Route: 048

REACTIONS (2)
  - Pain [Unknown]
  - Burning sensation [Unknown]
